FAERS Safety Report 23098327 (Version 2)
Quarter: 2023Q4

REPORT INFORMATION
  Report Type: Report from Study
  Country: IT (occurrence: IT)
  Receive Date: 20231023
  Receipt Date: 20231103
  Transmission Date: 20240109
  Serious: Yes (Hospitalization)
  Sender: FDA-Public Use
  Company Number: IT-Eisai Medical Research-EC-2023-145591

PATIENT
  Age: 72 Year
  Sex: Female
  Weight: 78 kg

DRUGS (10)
  1. LENVATINIB [Suspect]
     Active Substance: LENVATINIB
     Indication: Clear cell renal cell carcinoma
     Dosage: STARTING DOSE 20 MG, FLUCTUATED DOSE
     Route: 048
     Dates: start: 20221206, end: 20230705
  2. LENVATINIB [Suspect]
     Active Substance: LENVATINIB
     Route: 048
     Dates: start: 20230719
  3. PEMBROLIZUMAB [Suspect]
     Active Substance: PEMBROLIZUMAB
     Indication: Clear cell renal cell carcinoma
     Dosage: MK-1308 25MG + PEMBROLIZUMAB 400MG (MK-1308A)
     Route: 042
     Dates: start: 20221206, end: 20230525
  4. QUAVONLIMAB [Suspect]
     Active Substance: QUAVONLIMAB
     Dosage: MK-1308 25MG + PEMBROLIZUMAB 400MG (MK-1308A)
     Route: 042
     Dates: start: 20230706
  5. BARNIDIPINE HYDROCHLORIDE [Concomitant]
     Active Substance: BARNIDIPINE HYDROCHLORIDE
     Dates: start: 20230117
  6. HYDROCHLOROTHIAZIDE\OLMESARTAN MEDOXOMIL [Concomitant]
     Active Substance: HYDROCHLOROTHIAZIDE\OLMESARTAN MEDOXOMIL
     Dates: start: 20230117, end: 20230810
  7. CLONIDINE [Concomitant]
     Active Substance: CLONIDINE
     Dates: start: 20230123
  8. CETIRIZINE HYDROCHLORIDE [Concomitant]
     Active Substance: CETIRIZINE HYDROCHLORIDE
     Dates: start: 20230504
  9. EZETIMIBE [Concomitant]
     Active Substance: EZETIMIBE
     Dates: start: 201804
  10. LEVOTHYROXINE SODIUM [Concomitant]
     Active Substance: LEVOTHYROXINE SODIUM
     Dates: start: 20230228, end: 20230810

REACTIONS (1)
  - Oesophageal fistula [Recovered/Resolved]

NARRATIVE: CASE EVENT DATE: 20230705
